FAERS Safety Report 6359399-1 (Version None)
Quarter: 2009Q3

REPORT INFORMATION
  Report Type: 
  Country: None (occurrence: None)
  Receive Date: 20090917
  Receipt Date: 20090910
  Transmission Date: 20100115
  Serious: Yes (Hospitalization, Other)
  Sender: FDA-Public Use
  Company Number: DE-ABBOTT-09P-062-0597017-00

PATIENT
  Age: 14 Year
  Sex: Female

DRUGS (4)
  1. SIBUTRAMINE [Suspect]
     Indication: DRUG USE FOR UNKNOWN INDICATION
  2. ATOMOXETINE HCL [Suspect]
     Indication: DRUG USE FOR UNKNOWN INDICATION
  3. METHYLPHENIDATE HCL [Suspect]
     Indication: DRUG USE FOR UNKNOWN INDICATION
  4. CHINESE SLIMMING CAPSULE [Suspect]
     Indication: DRUG USE FOR UNKNOWN INDICATION

REACTIONS (3)
  - AGITATION [None]
  - CONFUSIONAL STATE [None]
  - POISONING [None]
